FAERS Safety Report 24791690 (Version 2)
Quarter: 2024Q4

REPORT INFORMATION
  Report Type: Spontaneous
  Country: US (occurrence: US)
  Receive Date: 20241231
  Receipt Date: 20241231
  Transmission Date: 20250114
  Serious: Yes (Other)
  Sender: AMGEN
  Company Number: US-AMGEN-USASP2024252075

PATIENT
  Age: 90 Year
  Sex: Male

DRUGS (4)
  1. PREDNISONE [Suspect]
     Active Substance: PREDNISONE
     Indication: Hormone-refractory prostate cancer
     Dosage: UNK
     Route: 065
  2. ABIRATERONE [Concomitant]
     Active Substance: ABIRATERONE\ABIRATERONE ACETATE
     Indication: Hormone-refractory prostate cancer
     Dosage: UNK
     Route: 065
  3. DOCETAXEL [Concomitant]
     Active Substance: DOCETAXEL
     Dosage: UNK
     Route: 065
  4. TESTOSTERONE UNDECANOATE [Concomitant]
     Active Substance: TESTOSTERONE UNDECANOATE
     Dosage: 1000 MILLIGRAM, Q4WK
     Route: 030

REACTIONS (4)
  - Hormone-refractory prostate cancer [Unknown]
  - Metastasis [Unknown]
  - Drug ineffective for unapproved indication [Unknown]
  - Off label use [Unknown]
